FAERS Safety Report 7308754-1 (Version None)
Quarter: 2011Q1

REPORT INFORMATION
  Report Type: 
  Country: None (occurrence: None)
  Receive Date: 20110223
  Receipt Date: 20110211
  Transmission Date: 20110831
  Serious: Yes (Other)
  Sender: FDA-Public Use
  Company Number: PHEH2008US03405

PATIENT
  Sex: Male

DRUGS (19)
  1. AREDIA [Suspect]
     Dosage: MONTHLY
     Dates: end: 20070401
  2. AMOXICILLIN [Concomitant]
     Dosage: 500MG
     Dates: start: 20080107
  3. LISINOPRIL [Concomitant]
     Indication: HYPERTENSION
  4. PROCRIT                            /00909301/ [Concomitant]
  5. PENICILLIN V POTASSIUM [Concomitant]
     Dosage: 1 TAB Q8 HRS
  6. LORTAB [Concomitant]
     Dosage: 5-500MG Q4 HRS PRN
  7. FLAGYL [Concomitant]
     Dosage: UNK
     Dates: start: 20080107
  8. CLINDAMYCIN [Concomitant]
     Dosage: 300 MG, UNK
  9. PRAVASTATIN [Concomitant]
  10. INTERFERON [Concomitant]
  11. CHLORHEXIDINE GLUCONATE [Concomitant]
  12. HYDROCODONE [Concomitant]
  13. INTRON [Concomitant]
  14. PERIDEX [Concomitant]
     Dosage: 15CC FOR 30 SEC 3X QD
  15. DECADRON [Concomitant]
  16. MONTELUKAST SODIUM [Concomitant]
     Dosage: 1 TAB AT BEDTIME
     Route: 048
  17. TRAMADOL HCL [Concomitant]
     Dosage: 50MG
  18. AMOXAPINE [Concomitant]
  19. LIPITOR [Concomitant]
     Indication: HYPERCHOLESTEROLAEMIA

REACTIONS (38)
  - PAIN IN JAW [None]
  - RHINORRHOEA [None]
  - BONE DISORDER [None]
  - JOINT EFFUSION [None]
  - OSTEOMYELITIS [None]
  - ARTHRALGIA [None]
  - OSTEONECROSIS OF JAW [None]
  - GENERAL PHYSICAL HEALTH DETERIORATION [None]
  - ANAEMIA [None]
  - WEIGHT DECREASED [None]
  - ANXIETY [None]
  - OCCULT BLOOD POSITIVE [None]
  - COMPRESSION FRACTURE [None]
  - RENAL FAILURE [None]
  - COLONIC POLYP [None]
  - ANGINA PECTORIS [None]
  - BACK PAIN [None]
  - HYPOAESTHESIA ORAL [None]
  - MULTIPLE MYELOMA [None]
  - AORTIC ARTERIOSCLEROSIS [None]
  - AORTIC DILATATION [None]
  - CELLULITIS [None]
  - TOOTH ABSCESS [None]
  - INTERVERTEBRAL DISC COMPRESSION [None]
  - PAIN [None]
  - GASTROINTESTINAL DISORDER [None]
  - METASTASES TO BONE [None]
  - LUMBAR SPINAL STENOSIS [None]
  - URINARY TRACT INFECTION [None]
  - SEPSIS SYNDROME [None]
  - PYREXIA [None]
  - INTERVERTEBRAL DISC DEGENERATION [None]
  - INFECTION [None]
  - BONE PAIN [None]
  - ORAL CAVITY FISTULA [None]
  - ORAL DISORDER [None]
  - HYPERPLASIA [None]
  - SPINAL OSTEOARTHRITIS [None]
